FAERS Safety Report 5176645-0 (Version None)
Quarter: 2006Q4

REPORT INFORMATION
  Report Type: 
  Country: None (occurrence: None)
  Receive Date: 20061215
  Receipt Date: 20061031
  Transmission Date: 20070319
  Serious: Yes (Death, Life-Threatening, Hospitalization)
  Sender: FDA-Public Use
  Company Number: CZ-ABBOTT-06P-217-0348639-00

PATIENT
  Sex: Female
  Weight: 111 kg

DRUGS (21)
  1. ZEMPLAR [Suspect]
     Indication: RENAL FAILURE CHRONIC
     Route: 042
     Dates: start: 20060501, end: 20060825
  2. ZEMPLAR [Suspect]
     Indication: HYPERPARATHYROIDISM SECONDARY
  3. EPOETIN BETA [Concomitant]
     Indication: DRUG USE FOR UNKNOWN INDICATION
     Dosage: AFTER HEMODIALYSIS
     Route: 058
  4. SOTALOL HYDROCHLORIDE [Concomitant]
     Indication: DRUG USE FOR UNKNOWN INDICATION
     Dates: start: 20040601
  5. FERRIECIT [Concomitant]
     Indication: DRUG USE FOR UNKNOWN INDICATION
     Dosage: AFTER DIALYSIS
     Route: 042
  6. GODASAL [Concomitant]
     Indication: DRUG USE FOR UNKNOWN INDICATION
  7. NAHCO3 [Concomitant]
     Indication: DRUG USE FOR UNKNOWN INDICATION
  8. CACO3 [Concomitant]
     Indication: DRUG USE FOR UNKNOWN INDICATION
  9. SEVELAMER HYDROCHLORIDE [Concomitant]
     Indication: DRUG USE FOR UNKNOWN INDICATION
  10. SULODEXIDE [Concomitant]
     Indication: DRUG USE FOR UNKNOWN INDICATION
  11. FOLIC ACID [Concomitant]
     Indication: DRUG USE FOR UNKNOWN INDICATION
  12. LOMAC [Concomitant]
     Indication: DRUG USE FOR UNKNOWN INDICATION
  13. DIAZEPAM [Concomitant]
     Indication: DRUG USE FOR UNKNOWN INDICATION
  14. BISULEPIN HYDROCHLORIDE [Concomitant]
     Indication: DRUG USE FOR UNKNOWN INDICATION
  15. PURILON COLOPLAST [Concomitant]
     Indication: DRUG USE FOR UNKNOWN INDICATION
  16. DARBEPOETIN [Concomitant]
     Indication: DRUG USE FOR UNKNOWN INDICATION
     Dates: start: 20050801, end: 20060701
  17. OMEPRAZOLE [Concomitant]
     Indication: DRUG USE FOR UNKNOWN INDICATION
  18. CITALEC [Concomitant]
     Indication: DRUG USE FOR UNKNOWN INDICATION
  19. TRANSTEC [Concomitant]
     Indication: DRUG USE FOR UNKNOWN INDICATION
     Dates: start: 20060830
  20. ACETAMINOPHEN [Concomitant]
     Indication: DRUG USE FOR UNKNOWN INDICATION
  21. CLEXAN [Concomitant]
     Indication: DRUG USE FOR UNKNOWN INDICATION

REACTIONS (11)
  - C-REACTIVE PROTEIN INCREASED [None]
  - CALCIPHYLAXIS [None]
  - CARDIAC FAILURE [None]
  - DIARRHOEA [None]
  - HYPERPARATHYROIDISM SECONDARY [None]
  - INTERNATIONAL NORMALISED RATIO INCREASED [None]
  - OEDEMA PERIPHERAL [None]
  - PAIN IN EXTREMITY [None]
  - SKIN NECROSIS [None]
  - SOPOR [None]
  - WOUND INFECTION [None]
